FAERS Safety Report 5215254-1 (Version None)
Quarter: 2007Q1

REPORT INFORMATION
  Report Type: 
  Country: None (occurrence: None)
  Receive Date: 20061122
  Receipt Date: 20051202
  Transmission Date: 20070707
  Serious: Yes (Other)
  Sender: FDA-Public Use
  Company Number: HQWYE829306DEC05

PATIENT
  Age: 78 Year
  Sex: Female
  Weight: 80 kg

DRUGS (3)
  1. ZOSYN [Suspect]
     Dosage: 3.375 GRAMS EVERY 6 HOURS, INTRAVENOUS
     Route: 042
     Dates: start: 20051116, end: 20051117
  2. LOPRESSOR [Concomitant]
  3. CARDIZEM [Concomitant]

REACTIONS (1)
  - INTERNATIONAL NORMALISED RATIO INCREASED [None]
